FAERS Safety Report 5723071-9 (Version None)
Quarter: 2008Q2

REPORT INFORMATION
  Report Type: 
  Country: None (occurrence: None)
  Receive Date: 20080423
  Receipt Date: 20071218
  Transmission Date: 20081010
  Serious: Yes (Hospitalization)
  Sender: FDA-Public Use
  Company Number: 248324

PATIENT
  Age: 53 Year
  Sex: Male

DRUGS (5)
  1. AVASTIN [Suspect]
     Indication: RECTAL CANCER
     Dosage: 450, Q3W, INTRAVENOUS
     Route: 042
     Dates: start: 20060710
  2. OXALIPLATIN [Suspect]
     Indication: RECTAL CANCER
     Dosage: 100 MG, INTRAVENOUS
     Route: 042
     Dates: start: 20060710
  3. LEUCOVORIN CALCIUM [Suspect]
     Indication: RECTAL CANCER
     Dosage: 450, INTRAVEOUS
     Route: 042
     Dates: start: 20060710
  4. FLUOROURACIL [Suspect]
     Indication: RECTAL CANCER
     Dosage: 840, INTRAVENOUS
     Route: 042
     Dates: start: 20060710
  5. LEUCOVORIN CALCIUM [Concomitant]

REACTIONS (1)
  - MYOCARDIAL INFARCTION [None]
